FAERS Safety Report 16808329 (Version 4)
Quarter: 2020Q1

REPORT INFORMATION
  Report Type: Spontaneous
  Country: QA (occurrence: QA)
  Receive Date: 20190916
  Receipt Date: 20200203
  Transmission Date: 20200409
  Serious: Yes (Other)
  Sender: FDA-Public Use
  Company Number: QA-BEH-2019102084

PATIENT
  Age: 45 Year
  Sex: Female
  Weight: 97 kg

DRUGS (2)
  1. HAEMOCOMPLETTAN P [Suspect]
     Active Substance: FIBRINOGEN HUMAN
     Indication: FACTOR I DEFICIENCY
     Dosage: UNK
     Route: 065
     Dates: start: 201807
  2. HAEMOCOMPLETTAN P [Suspect]
     Active Substance: FIBRINOGEN HUMAN
     Indication: POSTPARTUM HAEMORRHAGE
     Dosage: 3 CONSECUTIVE DOSES
     Route: 065
     Dates: start: 201901, end: 201905

REACTIONS (2)
  - Product storage error [Unknown]
  - Drug ineffective [Unknown]
